FAERS Safety Report 5828161-8 (Version None)
Quarter: 2008Q3

REPORT INFORMATION
  Report Type: 
  Country: None (occurrence: None)
  Receive Date: 20080729
  Receipt Date: 20080721
  Transmission Date: 20090109
  Serious: Yes (Hospitalization)
  Sender: FDA-Public Use
  Company Number: 167-C5013-08071180

PATIENT
  Age: 62 Year
  Sex: Male

DRUGS (1)
  1. CC-5013 (LENALIDOMIDE) (CAPSULES) [Suspect]
     Indication: CHRONIC LYMPHOCYTIC LEUKAEMIA
     Dosage: 2.5 MG, ORAL
     Route: 048
     Dates: start: 20080707, end: 20080718

REACTIONS (3)
  - DYSPHAGIA [None]
  - DYSPNOEA [None]
  - LYMPHADENOPATHY [None]
